FAERS Safety Report 8030361-6 (Version None)
Quarter: 2012Q1

REPORT INFORMATION
  Report Type: 
  Country: None (occurrence: None)
  Receive Date: 20120109
  Receipt Date: 20120109
  Transmission Date: 20120608
  Serious: Yes (Death)
  Sender: FDA-Public Use
  Company Number: None

PATIENT
  Age: 5 Year
  Sex: Male
  Weight: 10.886 kg

DRUGS (1)
  1. GENOTROPIN [Suspect]
     Indication: BODY HEIGHT BELOW NORMAL
     Dosage: .4 MG
     Route: 030
     Dates: start: 20100920, end: 20110919

REACTIONS (6)
  - DYSPNOEA [None]
  - CARDIAC MURMUR [None]
  - LOSS OF CONSCIOUSNESS [None]
  - PULMONARY HYPERTENSION [None]
  - HEADACHE [None]
  - MULTIPLE ALLERGIES [None]
